FAERS Safety Report 9953755 (Version 1)
Quarter: 2014Q1

REPORT INFORMATION
  Report Type: Spontaneous
  Country: US (occurrence: US)
  Receive Date: 20140304
  Receipt Date: 20140304
  Transmission Date: 20141002
  Serious: No
  Sender: FDA-Public Use
  Company Number: US-ABBVIE-13P-163-1080481-00

PATIENT
  Age: 40 Year
  Sex: Male
  Weight: 93.98 kg

DRUGS (5)
  1. HUMIRA [Suspect]
     Indication: CROHN^S DISEASE
     Dates: start: 201211, end: 201211
  2. HUMIRA [Suspect]
     Dates: start: 2012, end: 2012
  3. HUMIRA [Suspect]
     Dates: start: 201212
  4. IRON [Concomitant]
     Indication: CROHN^S DISEASE
  5. PENTASA [Concomitant]
     Indication: CROHN^S DISEASE

REACTIONS (2)
  - Injection site erythema [Recovered/Resolved]
  - Injection site pruritus [Recovered/Resolved]
